FAERS Safety Report 5574454-1 (Version None)
Quarter: 2007Q4

REPORT INFORMATION
  Report Type: 
  Country: None (occurrence: None)
  Receive Date: 20071226
  Receipt Date: 20071226
  Transmission Date: 20080405
  Serious: Yes (Hospitalization)
  Sender: FDA-Public Use
  Company Number: None

PATIENT
  Age: 63 Year
  Sex: Male

DRUGS (2)
  1. IBUPROFEN [Suspect]
     Indication: PAIN
     Dosage: 800MG EVERY DAY PO
     Route: 048
     Dates: start: 20070928, end: 20071028
  2. NAPROXEN [Suspect]
     Indication: PAIN
     Dosage: 1200MG EVERY DAY PO
     Route: 048
     Dates: start: 20071025, end: 20071028

REACTIONS (6)
  - GASTRIC HAEMORRHAGE [None]
  - HYPOTENSION [None]
  - INCORRECT DOSE ADMINISTERED [None]
  - INTENTIONAL DRUG MISUSE [None]
  - NAUSEA [None]
  - VOMITING [None]
